FAERS Safety Report 5594849-X (Version None)
Quarter: 2008Q1

REPORT INFORMATION
  Report Type: 
  Country: None (occurrence: None)
  Receive Date: 20080117
  Receipt Date: 20080111
  Transmission Date: 20080703
  Serious: Yes (Death)
  Sender: FDA-Public Use
  Company Number: US-GENENTECH-253785

PATIENT
  Age: 63 Year
  Sex: Male
  Weight: 85.1 kg

DRUGS (2)
  1. BEVACIZUMAB [Suspect]
     Indication: GLIOBLASTOMA MULTIFORME
     Dosage: 10 MG/KG, DAYS 1+15
     Route: 042
     Dates: start: 20071102, end: 20071116
  2. IRINOTECAN [Concomitant]
     Indication: GLIOBLASTOMA MULTIFORME
     Dosage: 125 MG/M2, DAYS 1+15
     Route: 042
     Dates: start: 20071102, end: 20071116

REACTIONS (1)
  - DEATH [None]
